FAERS Safety Report 13625544 (Version 1)
Quarter: 2017Q2

REPORT INFORMATION
  Report Type: Spontaneous
  Country: TR (occurrence: TR)
  Receive Date: 20170608
  Receipt Date: 20170608
  Transmission Date: 20170830
  Serious: Yes (Other)
  Sender: FDA-Public Use
  Company Number: ALCN2017TR003692

PATIENT
  Age: 58 Year
  Sex: Male

DRUGS (2)
  1. VIGAMOX [Concomitant]
     Active Substance: MOXIFLOXACIN HYDROCHLORIDE
     Indication: PRODUCT USED FOR UNKNOWN INDICATION
     Dosage: UNK, 6QD
     Route: 047
  2. MAXIDEX [Suspect]
     Active Substance: DEXAMETHASONE
     Indication: PRODUCT USED FOR UNKNOWN INDICATION
     Dosage: UNK, 6QD (CONTINUED FOR 6-12 MONTHS AT A DECREASING DOSE)
     Route: 047

REACTIONS (2)
  - Glaucoma [Unknown]
  - Keratitis fungal [Unknown]
